FAERS Safety Report 5932331-8 (Version None)
Quarter: 2008Q4

REPORT INFORMATION
  Report Type: 
  Country: None (occurrence: None)
  Receive Date: 20081028
  Receipt Date: 20081015
  Transmission Date: 20090506
  Serious: Yes (Disabling, Other)
  Sender: FDA-Public Use
  Company Number: US-BAYER-200836213NA

PATIENT
  Sex: Male

DRUGS (1)
  1. TRASYLOL [Suspect]
     Indication: HEART VALVE REPLACEMENT
     Route: 042
     Dates: start: 20000925

REACTIONS (12)
  - BALANCE DISORDER [None]
  - EMBOLIC STROKE [None]
  - EMOTIONAL DISTRESS [None]
  - HEMIPARESIS [None]
  - HYPOAESTHESIA [None]
  - ILL-DEFINED DISORDER [None]
  - INJURY [None]
  - INSOMNIA [None]
  - MOTOR DYSFUNCTION [None]
  - PAIN [None]
  - SPEECH DISORDER [None]
  - UNEVALUABLE EVENT [None]
